FAERS Safety Report 16417539 (Version 2)
Quarter: 2019Q3

REPORT INFORMATION
  Report Type: Spontaneous
  Country: IT (occurrence: IT)
  Receive Date: 20190611
  Receipt Date: 20190805
  Transmission Date: 20191004
  Serious: Yes (Other)
  Sender: FDA-Public Use
  Company Number: IT-ELI_LILLY_AND_COMPANY-IT201906002716

PATIENT
  Age: 59 Year
  Sex: Female

DRUGS (6)
  1. DIAMICRON [Concomitant]
     Active Substance: GLICLAZIDE
     Indication: PRODUCT USED FOR UNKNOWN INDICATION
     Dosage: UNK UNK, UNKNOWN
     Route: 065
  2. APROVEL [Concomitant]
     Active Substance: IRBESARTAN
     Indication: PRODUCT USED FOR UNKNOWN INDICATION
     Dosage: 150 MG, UNKNOWN
     Route: 065
  3. TRULICITY [Suspect]
     Active Substance: DULAGLUTIDE
     Indication: PRODUCT USED FOR UNKNOWN INDICATION
     Dosage: UNK UNK, UNKNOWN
     Route: 065
     Dates: start: 201712
  4. SINVACOR [Concomitant]
     Active Substance: SIMVASTATIN
     Indication: PRODUCT USED FOR UNKNOWN INDICATION
     Dosage: UNK UNK, UNKNOWN
     Route: 065
  5. GLUCOPHAGE [Concomitant]
     Active Substance: METFORMIN HYDROCHLORIDE
     Indication: PRODUCT USED FOR UNKNOWN INDICATION
     Dosage: UNK UNK, UNKNOWN
     Route: 065
  6. CARDIRENE [Concomitant]
     Active Substance: ASPIRIN DL-LYSINE
     Indication: PRODUCT USED FOR UNKNOWN INDICATION

REACTIONS (5)
  - Glaucoma [Unknown]
  - Decreased appetite [Unknown]
  - Headache [Unknown]
  - Nausea [Unknown]
  - Dysgeusia [Unknown]

NARRATIVE: CASE EVENT DATE: 201712
